FAERS Safety Report 23922252 (Version 1)
Quarter: 2024Q2

REPORT INFORMATION
  Report Type: Spontaneous
  Country: DE (occurrence: DE)
  Receive Date: 20240531
  Receipt Date: 20240531
  Transmission Date: 20240715
  Serious: Yes (Hospitalization)
  Sender: FDA-Public Use
  Company Number: DE-AMNEAL PHARMACEUTICALS-2024-AMRX-01915

PATIENT
  Age: 76 Year
  Sex: Female

DRUGS (2)
  1. TRIAMCINOLONE ACETONIDE [Suspect]
     Active Substance: TRIAMCINOLONE ACETONIDE
     Indication: Muscle spasticity
     Dosage: CUMULATIVE DOSE OF 80MG OVER 2 DAYS EVERY 6 MONTH
     Route: 037
     Dates: start: 201906
  2. TRIAMCINOLONE ACETONIDE [Suspect]
     Active Substance: TRIAMCINOLONE ACETONIDE
     Dosage: DAY 17
     Route: 037

REACTIONS (1)
  - Pleocytosis [Unknown]
